FAERS Safety Report 12005113 (Version 1)
Quarter: 2016Q1

REPORT INFORMATION
  Report Type: Spontaneous
  Country: BR (occurrence: BR)
  Receive Date: 20160204
  Receipt Date: 20160204
  Transmission Date: 20160526
  Serious: Yes (Other)
  Sender: FDA-Public Use
  Company Number: BR-JNJFOC-20160120046

PATIENT
  Age: 66 Year
  Sex: Female
  Weight: 64 kg

DRUGS (3)
  1. REMICADE [Suspect]
     Active Substance: INFLIXIMAB
     Indication: RHEUMATOID ARTHRITIS
     Route: 042
     Dates: start: 20151130
  2. REMICADE [Suspect]
     Active Substance: INFLIXIMAB
     Indication: RHEUMATOID ARTHRITIS
     Route: 042
  3. ALL OTHER THERAPEUTIC PRODUCTS [Interacting]
     Active Substance: UNSPECIFIED INGREDIENT
     Indication: PAIN
     Route: 065

REACTIONS (10)
  - Psoriatic arthropathy [Unknown]
  - Anaemia [Recovered/Resolved]
  - Hypertension [Unknown]
  - Arthropathy [Unknown]
  - Blood cholesterol abnormal [Unknown]
  - Inappropriate schedule of drug administration [Unknown]
  - Treatment noncompliance [Unknown]
  - Drug interaction [Unknown]
  - Urinary tract infection [Recovered/Resolved]
  - Rheumatic disorder [Unknown]

NARRATIVE: CASE EVENT DATE: 201507
